FAERS Safety Report 19817259 (Version 9)
Quarter: 2022Q1

REPORT INFORMATION
  Report Type: Report from Study
  Country: CN (occurrence: CN)
  Receive Date: 20210910
  Receipt Date: 20220315
  Transmission Date: 20220423
  Serious: Yes (Hospitalization, Other)
  Sender: FDA-Public Use
  Company Number: CN-BRISTOL-MYERS SQUIBB COMPANY-BMS-2021-081283

PATIENT
  Age: 71 Year
  Sex: Male
  Weight: 50 kg

DRUGS (22)
  1. NIVOLUMAB [Suspect]
     Active Substance: NIVOLUMAB
     Indication: Non-small cell lung cancer
     Dosage: 360 MILLIGRAM
     Route: 042
     Dates: start: 20210721
  2. CARBOPLATIN [Suspect]
     Active Substance: CARBOPLATIN
     Indication: Non-small cell lung cancer
     Dosage: 400 MILLIGRAM
     Route: 065
     Dates: start: 20210722
  3. PACLITAXEL [Suspect]
     Active Substance: PACLITAXEL
     Indication: Non-small cell lung cancer
     Dosage: 267 MILLIGRAM
     Route: 065
     Dates: start: 20210721
  4. PANTOPRAZOLE SODIUM [Concomitant]
     Active Substance: PANTOPRAZOLE SODIUM
     Indication: Product used for unknown indication
     Dosage: 40 MILLIGRAM
     Route: 042
     Dates: start: 20210810, end: 20210811
  5. ONDANSETRON HYDROCHLORIDE [Concomitant]
     Active Substance: ONDANSETRON HYDROCHLORIDE
     Indication: Product used for unknown indication
     Dosage: 8 MILLIGRAM
     Route: 042
     Dates: start: 20210810, end: 20210811
  6. SODIUM CHLORIDE [Concomitant]
     Active Substance: SODIUM CHLORIDE
     Indication: Product used for unknown indication
     Dosage: 1 DOSAGE FORM= 20 UNITS NOS
     Route: 042
     Dates: start: 20210810, end: 20210813
  7. PROMETHAZINE HYDROCHLORIDE [Concomitant]
     Active Substance: PROMETHAZINE HYDROCHLORIDE
     Indication: Product used for unknown indication
     Dosage: 25 MILLIGRAM
     Route: 058
     Dates: start: 20210801, end: 20210901
  8. PROMETHAZINE HYDROCHLORIDE [Concomitant]
     Active Substance: PROMETHAZINE HYDROCHLORIDE
     Dosage: 25 MILLIGRAM
     Route: 030
     Dates: start: 20210810, end: 20210810
  9. PROMETHAZINE HYDROCHLORIDE [Concomitant]
     Active Substance: PROMETHAZINE HYDROCHLORIDE
     Dosage: 25 MILLIGRAM
     Route: 030
     Dates: start: 20210813, end: 20210813
  10. FUROSEMIDE [Concomitant]
     Active Substance: FUROSEMIDE
     Indication: Product used for unknown indication
     Dosage: 20 MILLIGRAM
     Route: 042
     Dates: start: 20210810, end: 20210810
  11. FUROSEMIDE [Concomitant]
     Active Substance: FUROSEMIDE
     Dosage: 140 MILLIGRAM
     Route: 042
     Dates: start: 20210816, end: 20210823
  12. CALCIUM GLUCONATE [Concomitant]
     Active Substance: CALCIUM GLUCONATE
     Indication: Product used for unknown indication
     Dosage: 1 DOSAGE FORM= 10 UNITS NOS
     Route: 042
     Dates: start: 20210816, end: 20210817
  13. POTASSIUM CHLORIDE [Concomitant]
     Active Substance: POTASSIUM CHLORIDE
     Indication: Product used for unknown indication
     Dosage: 1 DOSAGE FORM= 10 UNITS NOS, QD
     Route: 042
     Dates: start: 20210816, end: 20210817
  14. RECOMBINANT HUMAN ERYTHROPOIETIN INJECTION (CHO CELL) [Concomitant]
     Indication: Product used for unknown indication
     Dosage: 21000 UNIT, QD
     Route: 042
     Dates: start: 20210812, end: 20210901
  15. IRON SUCROSE [Concomitant]
     Active Substance: IRON SUCROSE
     Indication: Product used for unknown indication
     Dosage: 1 DOSAGE FORM: 10 UNIT NOS
     Route: 042
     Dates: start: 20210812, end: 20210901
  16. MOXIFLOXACIN HYDROCHLORIDE [Concomitant]
     Active Substance: MOXIFLOXACIN HYDROCHLORIDE
     Indication: Product used for unknown indication
     Dosage: 0.4 GRAM, QD
     Route: 042
     Dates: start: 20210816, end: 20210830
  17. CEFTEZOLE SODIUM [Concomitant]
     Active Substance: CEFTEZOLE SODIUM
     Indication: Product used for unknown indication
     Dosage: 0.5 GRAM, ONCE
     Route: 050
     Dates: start: 20210813, end: 20210813
  18. CEFTEZOLE SODIUM [Concomitant]
     Active Substance: CEFTEZOLE SODIUM
     Indication: Product used for unknown indication
     Dosage: 2 GRAM-ONCE
     Route: 042
     Dates: start: 20210813, end: 20210813
  19. CEFTEZOLE SODIUM [Concomitant]
     Active Substance: CEFTEZOLE SODIUM
     Dosage: 2 GRAM, BID
     Route: 042
     Dates: start: 20210814, end: 20210827
  20. CARBOHYDRATES\ELECTROLYTES NOS [Concomitant]
     Active Substance: CARBOHYDRATES\ELECTROLYTES NOS
     Indication: Product used for unknown indication
     Dosage: 1 DOSAGE FORM= 500 UNITS NOS, QD
     Route: 042
     Dates: start: 20210810, end: 20210813
  21. CARBOHYDRATES\ELECTROLYTES NOS [Concomitant]
     Active Substance: CARBOHYDRATES\ELECTROLYTES NOS
     Dosage: 1 DOSAGE FORM= 500 UNITS NOS, QD
     Route: 042
     Dates: start: 20210816, end: 20210817
  22. SODIUM CHLORIDE [Concomitant]
     Active Substance: SODIUM CHLORIDE
     Indication: Product used for unknown indication
     Dosage: 20-UNITS NOT SPECIFIED, PER DAY
     Route: 042
     Dates: start: 20210810, end: 20210813

REACTIONS (2)
  - Atrial fibrillation [Recovered/Resolved]
  - Myelosuppression [Recovered/Resolved]

NARRATIVE: CASE EVENT DATE: 20210813
